FAERS Safety Report 4449005-5 (Version None)
Quarter: 2004Q3

REPORT INFORMATION
  Report Type: 
  Country: None (occurrence: None)
  Receive Date: 20040910
  Receipt Date: 20040901
  Transmission Date: 20050211
  Serious: Yes (Death)
  Sender: FDA-Public Use
  Company Number: 10050649-G016733-0

PATIENT
  Age: 83 Year
  Sex: Female

DRUGS (2)
  1. POTASSIUM CHLORIDE [Suspect]
     Indication: RENAL FAILURE
     Dates: start: 20040305
  2. BULK DISPENSING CONTAINER (2 MGEQ/ML, 250 ML) [Suspect]
     Dosage: FREQUENCY-CONTINUOUS

REACTIONS (4)
  - BLOOD POTASSIUM INCREASED [None]
  - BLOOD SODIUM DECREASED [None]
  - CARDIAC ARREST [None]
  - MEDICATION ERROR [None]
